FAERS Safety Report 22607332 (Version 2)
Quarter: 2023Q4

REPORT INFORMATION
  Report Type: Report from Study
  Country: US (occurrence: US)
  Receive Date: 20230615
  Receipt Date: 20231218
  Transmission Date: 20240110
  Serious: No
  Sender: FDA-Public Use
  Company Number: US-ACADIA PHARMACEUTICALS INC.-ACA-2023-PIM-001478

PATIENT
  Sex: Male

DRUGS (9)
  1. NUPLAZID [Suspect]
     Active Substance: PIMAVANSERIN TARTRATE
     Indication: Parkinson^s disease psychosis
     Dosage: 34 MILLIGRAM, QD
     Route: 048
  2. CARBIDOPA LEVODOPA [Concomitant]
     Active Substance: CARBIDOPA\LEVODOPA
  3. PRAMIPEXOLE [Concomitant]
     Active Substance: PRAMIPEXOLE
  4. AMANTADINE [Concomitant]
     Active Substance: AMANTADINE
  5. GABAPENTIN [Concomitant]
     Active Substance: GABAPENTIN
  6. TAMSULOSIN [Concomitant]
     Active Substance: TAMSULOSIN
  7. MIRTAZAPINE [Concomitant]
     Active Substance: MIRTAZAPINE
  8. ESOMEPRAZOLE [Concomitant]
     Active Substance: ESOMEPRAZOLE
  9. CELECOXIB [Concomitant]
     Active Substance: CELECOXIB

REACTIONS (5)
  - Abdominal discomfort [Unknown]
  - Dyspepsia [Recovered/Resolved]
  - Product dose omission issue [Not Recovered/Not Resolved]
  - Hallucination [Not Recovered/Not Resolved]
  - Drug ineffective [Not Recovered/Not Resolved]
